FAERS Safety Report 25110242 (Version 2)
Quarter: 2025Q2

REPORT INFORMATION
  Report Type: Report from Study
  Country: US (occurrence: US)
  Receive Date: 20250324
  Receipt Date: 20250425
  Transmission Date: 20250717
  Serious: Yes (Death, Other)
  Sender: BOEHRINGER INGELHEIM
  Company Number: US-BoehringerIngelheim-2024-BI-068694

PATIENT
  Sex: Male
  Weight: 65.9 kg

DRUGS (2)
  1. OFEV [Suspect]
     Active Substance: NINTEDANIB
     Indication: Idiopathic pulmonary fibrosis
     Dates: start: 20211014, end: 20250219
  2. OFEV [Suspect]
     Active Substance: NINTEDANIB
     Dates: start: 2025

REACTIONS (4)
  - Death [Fatal]
  - Pulmonary congestion [Unknown]
  - Condition aggravated [Unknown]
  - Diarrhoea [Not Recovered/Not Resolved]
